FAERS Safety Report 5226569-5 (Version None)
Quarter: 2007Q1

REPORT INFORMATION
  Report Type: 
  Country: None (occurrence: None)
  Receive Date: 20070201
  Receipt Date: 20070122
  Transmission Date: 20070707
  Serious: Yes (Other)
  Sender: FDA-Public Use
  Company Number: FI-PFIZER INC-2007006256

PATIENT
  Sex: Male

DRUGS (2)
  1. VIAGRA [Suspect]
     Route: 048
  2. ASPIRIN [Concomitant]

REACTIONS (1)
  - VISUAL ACUITY REDUCED [None]
